FAERS Safety Report 4981818-3 (Version None)
Quarter: 2006Q2

REPORT INFORMATION
  Report Type: 
  Country: None (occurrence: None)
  Receive Date: 20060425
  Receipt Date: 20060424
  Transmission Date: 20061013
  Serious: Yes (Hospitalization)
  Sender: FDA-Public Use
  Company Number: FR-GLAXOSMITHKLINE-B0421101A

PATIENT
  Age: 33 Year
  Sex: Male
  Weight: 69 kg

DRUGS (6)
  1. ZOPHREN [Suspect]
     Dosage: 8MG PER DAY
     Route: 042
     Dates: start: 20060227, end: 20060303
  2. POLARAMINE [Suspect]
     Dosage: 5MG PER DAY
     Route: 042
     Dates: start: 20060228, end: 20060228
  3. ETOPOSIDE [Suspect]
     Dosage: 187MG PER DAY
     Route: 042
     Dates: start: 20060227, end: 20060303
  4. CISPLATIN [Suspect]
     Dosage: 37.5MG PER DAY
     Route: 042
     Dates: start: 20060227, end: 20060303
  5. SOLU-MEDROL [Suspect]
     Dosage: 60MG PER DAY
     Route: 042
     Dates: start: 20060227, end: 20060303
  6. BLEOMYCIN [Suspect]
     Dosage: 30MG PER DAY
     Route: 042
     Dates: start: 20060228, end: 20060228

REACTIONS (2)
  - PYREXIA [None]
  - TREMOR [None]
